FAERS Safety Report 14046538 (Version 1)
Quarter: 2017Q4

REPORT INFORMATION
  Report Type: Spontaneous
  Country: US (occurrence: None)
  Receive Date: 20171005
  Receipt Date: 20171005
  Transmission Date: 20180321
  Serious: No
  Sender: FDA-Public Use
  Company Number: None

PATIENT
  Age: 46 Year
  Sex: Female
  Weight: 87.1 kg

DRUGS (1)
  1. IPILIMUMAB (BMS-734016; MDX-010 TRANSFECTOMA-DERIVED) [Suspect]
     Active Substance: IPILIMUMAB
     Dates: end: 20170905

REACTIONS (3)
  - Aspartate aminotransferase abnormal [None]
  - Alanine aminotransferase abnormal [None]
  - Blood alkaline phosphatase abnormal [None]

NARRATIVE: CASE EVENT DATE: 20170926
